FAERS Safety Report 15135300 (Version 4)
Quarter: 2018Q3

REPORT INFORMATION
  Report Type: Report from Study
  Country: IT (occurrence: IT)
  Receive Date: 20180712
  Receipt Date: 20180830
  Transmission Date: 20181010
  Serious: Yes (Hospitalization)
  Sender: FDA-Public Use
  Company Number: IT-BAXTER-2018BAX019146

PATIENT
  Age: 34 Year
  Sex: Male
  Weight: 68 kg

DRUGS (9)
  1. GABAPENTIN. [Concomitant]
     Active Substance: GABAPENTIN
     Indication: PAIN
     Dosage: DOSAGE FORM: UNSPECIFIED
     Route: 065
     Dates: start: 20180504
  2. FILGRASTIM [Concomitant]
     Active Substance: FILGRASTIM
     Indication: PROPHYLAXIS
     Dosage: DOSAGE FORM: UNSPECIFIED
     Route: 065
     Dates: start: 20180526
  3. ACETYLSALICYLIC ACID [Concomitant]
     Active Substance: ASPIRIN
     Indication: PROPHYLAXIS
     Dosage: DOSAGE FORM: UNSPECIFIED
     Route: 065
     Dates: start: 20180504
  4. TRAMADOL HYDROCHLORIDE. [Concomitant]
     Active Substance: TRAMADOL HYDROCHLORIDE
     Indication: PAIN
     Dosage: DOSAGE FORM: UNSPECIFIED
     Route: 065
     Dates: start: 20180504
  5. PANTOPRAZOLE [Concomitant]
     Active Substance: PANTOPRAZOLE
     Indication: GASTROINTESTINAL DISORDER THERAPY
     Dosage: DOSAGE FORM: UNSPECIFIED
     Route: 065
     Dates: start: 20180504
  6. HOLOXAN [Suspect]
     Active Substance: IFOSFAMIDE
     Indication: SARCOMA METASTATIC
     Dosage: DOSAGE FORM: UNSPECIFIED, DAYS 1?4 OF A 21 DAY CYCLE
     Route: 042
     Dates: start: 20180421
  7. UROMITEXAN 400 MG/ 4ML [Suspect]
     Active Substance: MESNA
     Indication: SARCOMA METASTATIC
     Dosage: DOSAGE FORM: UNSPECIFIED, 3000 UNITS UNSPECIFIED ON DAY 1 TO DAY 4 PER CYCLE, DOSE 3 (UNITS NOT REPO
     Route: 042
     Dates: start: 20180421
  8. OLARATUMAB [Suspect]
     Active Substance: OLARATUMAB
     Indication: SARCOMA METASTATIC
     Dosage: DOSAGE FORM: UNSPECIFIED, ON D1 AND D8 OF 21 DAY CYCLE
     Route: 042
     Dates: start: 20180421
  9. DOXORUBICIN [Suspect]
     Active Substance: DOXORUBICIN
     Indication: SARCOMA METASTATIC
     Route: 042
     Dates: start: 20180421

REACTIONS (3)
  - Off label use [Unknown]
  - Product use in unapproved indication [Unknown]
  - Febrile neutropenia [Recovered/Resolved]

NARRATIVE: CASE EVENT DATE: 20180531
